FAERS Safety Report 13065318 (Version 1)
Quarter: 2016Q4

REPORT INFORMATION
  Report Type: Spontaneous
  Country: US (occurrence: US)
  Receive Date: 20161227
  Receipt Date: 20161227
  Transmission Date: 20170207
  Serious: No
  Sender: FDA-Public Use
  Company Number: US-UNICHEM LABORATORIES LIMITED-UCM201609-000218

PATIENT
  Sex: Female

DRUGS (1)
  1. TIZANIDINE. [Suspect]
     Active Substance: TIZANIDINE

REACTIONS (1)
  - False positive investigation result [Unknown]
